FAERS Safety Report 20046589 (Version 3)
Quarter: 2022Q1

REPORT INFORMATION
  Report Type: Report from Study
  Country: DE (occurrence: None)
  Receive Date: 20211109
  Receipt Date: 20220311
  Transmission Date: 20220423
  Serious: Yes (Life-Threatening, Hospitalization)
  Sender: FDA-Public Use
  Company Number: DE-ROCHE-2947875

PATIENT
  Age: 60 Year
  Sex: Female
  Weight: 68 kg

DRUGS (6)
  1. ATEZOLIZUMAB [Suspect]
     Active Substance: ATEZOLIZUMAB
     Indication: Triple negative breast cancer
     Dosage: ON 29/SEP/2021, SHE RECEIVED  LAST DOSE OF ATEZOLIZUMAB PRIOR TO SAE:
     Route: 042
     Dates: start: 20210705
  2. PACLITAXEL [Suspect]
     Active Substance: PACLITAXEL
     Indication: Triple negative breast cancer
     Dosage: ON 22/SEP/2021  SHE RECEIVED LAST DOSE OF PACLITAXEL PRIOR TO AE AT 135 MG
     Route: 042
     Dates: start: 20210705
  3. CYCLOPHOSPHAMIDE [Suspect]
     Active Substance: CYCLOPHOSPHAMIDE
     Indication: Triple negative breast cancer
     Dosage: ON 29/SEP/2021 SHE RECEIVED MOST RECENT DOSE OF  CYCLOPHOSPHAMIDE PRIOR TO AE,
     Route: 042
     Dates: start: 20210929
  4. CARBOPLATIN [Suspect]
     Active Substance: CARBOPLATIN
     Indication: Triple negative breast cancer
     Dosage: ON 22/SEP/2021, HE RECEIVED MOST RECENRT DSE OF CARBOPLATIN PRIOR TO AE.
     Route: 042
     Dates: start: 20210705
  5. EPIRUBICIN [Suspect]
     Active Substance: EPIRUBICIN
     Indication: Triple negative breast cancer
     Dosage: ON 29/SEP/2021 SHE RECEIVED MOST RECENT DOSE OF EPIRUBICIN PRIOR TO AE.
     Route: 042
     Dates: start: 20210929
  6. PIPERACILLIN SODIUM\TAZOBACTAM SODIUM [Concomitant]
     Active Substance: PIPERACILLIN SODIUM\TAZOBACTAM SODIUM
     Dates: start: 20211006, end: 20211020

REACTIONS (2)
  - Hypokalaemia [Recovered/Resolved]
  - Febrile neutropenia [Recovered/Resolved]

NARRATIVE: CASE EVENT DATE: 20211006
